FAERS Safety Report 10011858 (Version 1)
Quarter: 2014Q1

REPORT INFORMATION
  Report Type: Spontaneous
  Country: DK (occurrence: GB)
  Receive Date: 20140314
  Receipt Date: 20140314
  Transmission Date: 20141002
  Serious: Yes (Hospitalization)
  Sender: FDA-Public Use
  Company Number: GB-FRI-1000064667

PATIENT
  Age: 21 Year
  Sex: Female
  Weight: 84 kg

DRUGS (13)
  1. CITALOPRAM [Suspect]
     Indication: DEPRESSION
     Dosage: 20 MG
     Route: 048
     Dates: start: 201302
  2. CITALOPRAM [Suspect]
     Indication: OBSESSIVE-COMPULSIVE DISORDER
  3. QUETIAPINE [Suspect]
     Route: 050
     Dates: start: 201311, end: 201401
  4. RISPERIDONE [Suspect]
     Indication: AGITATION
     Dosage: 1 MG
     Route: 050
     Dates: start: 201310
  5. STRATTERA [Suspect]
     Dosage: 10 MG
     Route: 050
     Dates: start: 201210, end: 201211
  6. STRATTERA [Suspect]
     Dosage: 18 MG
     Route: 050
     Dates: start: 201211, end: 201301
  7. STRATTERA [Suspect]
     Dosage: 25 MG
     Route: 050
     Dates: start: 201301, end: 201305
  8. STRATTERA [Suspect]
     Dosage: 40 MG
     Route: 050
     Dates: start: 201305, end: 201308
  9. STRATTERA [Suspect]
     Dosage: 60 MG
     Route: 050
     Dates: start: 201308, end: 201310
  10. STRATTERA [Suspect]
     Dosage: 40 MG
     Route: 050
     Dates: start: 201310, end: 201310
  11. STRATTERA [Suspect]
     Dosage: 25 MG
     Route: 050
     Dates: start: 201311, end: 201312
  12. CIRCADIN [Concomitant]
     Dosage: 8 MG
     Route: 050
     Dates: start: 201306
  13. SERTRALINE [Concomitant]
     Indication: AGITATION
     Dosage: 50 MG
     Route: 050
     Dates: start: 201310

REACTIONS (8)
  - Somnolence [Not Recovered/Not Resolved]
  - Depression [Not Recovered/Not Resolved]
  - Merycism [Not Recovered/Not Resolved]
  - Major depression [Not Recovered/Not Resolved]
  - Agitation [Not Recovered/Not Resolved]
  - Sedation [Not Recovered/Not Resolved]
  - Bipolar I disorder [Not Recovered/Not Resolved]
  - Attention deficit/hyperactivity disorder [Not Recovered/Not Resolved]
